FAERS Safety Report 19727293 (Version 1)
Quarter: 2021Q3

REPORT INFORMATION
  Report Type: Spontaneous
  Country: JP (occurrence: JP)
  Receive Date: 20210819
  Receipt Date: 20210819
  Transmission Date: 20211014
  Serious: Yes (Hospitalization)
  Sender: FDA-Public Use
  Company Number: JP-BIOMARINAP-JP-2021-138158

PATIENT
  Age: 53 Year
  Sex: Female

DRUGS (1)
  1. VIMIZIM [Suspect]
     Active Substance: ELOSULFASE ALFA
     Indication: MUCOPOLYSACCHARIDOSIS IV
     Dosage: 75 MILLIGRAM, QW
     Route: 042
     Dates: start: 20190218

REACTIONS (1)
  - SARS-CoV-2 test positive [Unknown]
